FAERS Safety Report 5711135-5 (Version None)
Quarter: 2008Q2

REPORT INFORMATION
  Report Type: 
  Country: None (occurrence: None)
  Receive Date: 20080417
  Receipt Date: 20080417
  Transmission Date: 20081010
  Serious: Yes (Hospitalization)
  Sender: FDA-Public Use
  Company Number: None

PATIENT
  Age: 65 Year
  Sex: Male
  Weight: 77.5651 kg

DRUGS (2)
  1. CISPLATIN [Suspect]
     Dosage: 50 MG IV
     Route: 042
     Dates: start: 20051129, end: 20051220
  2. IRINOTECAN HCL [Suspect]
     Dosage: 90 MG IV
     Route: 042
     Dates: start: 20051129, end: 20051220

REACTIONS (3)
  - THERAPEUTIC RESPONSE DECREASED [None]
  - TREMOR [None]
  - UROSEPSIS [None]
